FAERS Safety Report 15467995 (Version 1)
Quarter: 2018Q4

REPORT INFORMATION
  Report Type: Spontaneous
  Country: US (occurrence: US)
  Receive Date: 20181005
  Receipt Date: 20181005
  Transmission Date: 20190204
  Serious: No
  Sender: FDA-Public Use
  Company Number: US-SA-2018SA273869

PATIENT
  Age: 41 Year
  Sex: Male

DRUGS (4)
  1. CIMETIDINE [Concomitant]
     Active Substance: CIMETIDINE
  2. DUPIXENT [Suspect]
     Active Substance: DUPILUMAB
     Indication: DERMATITIS ATOPIC
     Dosage: 300 MG, QOW
     Route: 058
     Dates: start: 20180308
  3. ZAFIRLUKAST. [Concomitant]
     Active Substance: ZAFIRLUKAST
  4. EUCRISA [Concomitant]
     Active Substance: CRISABOROLE

REACTIONS (3)
  - Muscle spasms [Unknown]
  - Injection site inflammation [Unknown]
  - Movement disorder [Unknown]

NARRATIVE: CASE EVENT DATE: 2018
